FAERS Safety Report 19784458 (Version 1)
Quarter: 2021Q3

REPORT INFORMATION
  Report Type: Spontaneous
  Country: CN (occurrence: CN)
  Receive Date: 20210903
  Receipt Date: 20210903
  Transmission Date: 20211014
  Serious: Yes (Hospitalization)
  Sender: FDA-Public Use
  Company Number: CN-ROCHE-2901307

PATIENT
  Age: 73 Year
  Sex: Female
  Weight: 61 kg

DRUGS (13)
  1. VINDESINE [Concomitant]
     Active Substance: VINDESINE
     Dosage: MINIR?CHOP
     Dates: start: 20200501
  2. PIRARUBICIN [Suspect]
     Active Substance: PIRARUBICIN
     Indication: DIFFUSE LARGE B-CELL LYMPHOMA
     Dosage: R?CHOP
     Route: 065
     Dates: start: 20200116
  3. VINDESINE [Concomitant]
     Active Substance: VINDESINE
     Indication: DIFFUSE LARGE B-CELL LYMPHOMA
     Dosage: R?CHOP
     Dates: start: 20200116
  4. RITUXIMAB. [Suspect]
     Active Substance: RITUXIMAB
     Dosage: R?GEMOX
     Route: 041
     Dates: start: 20210729
  5. PIRARUBICIN [Suspect]
     Active Substance: PIRARUBICIN
     Dosage: MINIR?CHOP
     Route: 065
     Dates: start: 20200501
  6. RITUXIMAB. [Suspect]
     Active Substance: RITUXIMAB
     Dosage: MINIR?CHOP
     Route: 041
     Dates: start: 20200501
  7. DEXAMETHASONE. [Concomitant]
     Active Substance: DEXAMETHASONE
     Indication: DIFFUSE LARGE B-CELL LYMPHOMA
     Dosage: R?CHOP
     Dates: start: 20200116
  8. DEXAMETHASONE. [Concomitant]
     Active Substance: DEXAMETHASONE
     Dosage: MINIR?CHOP
     Dates: start: 20200501
  9. OXALIPLATIN. [Suspect]
     Active Substance: OXALIPLATIN
     Indication: DIFFUSE LARGE B-CELL LYMPHOMA
     Dosage: R?GEMOX
     Route: 041
     Dates: start: 20210729
  10. RITUXIMAB. [Suspect]
     Active Substance: RITUXIMAB
     Indication: DIFFUSE LARGE B-CELL LYMPHOMA
     Dosage: R?CHOP
     Route: 041
     Dates: start: 20200116
  11. GEMCITABINE. [Suspect]
     Active Substance: GEMCITABINE
     Indication: DIFFUSE LARGE B-CELL LYMPHOMA
     Dosage: R?GEMOX: 1.4G ON DAY1, 1.2G ON DAY8
     Route: 041
     Dates: start: 20210729
  12. CYCLOPHOSPHAMIDE. [Suspect]
     Active Substance: CYCLOPHOSPHAMIDE
     Indication: DIFFUSE LARGE B-CELL LYMPHOMA
     Dosage: R?CHOP
     Route: 065
     Dates: start: 20200116
  13. CYCLOPHOSPHAMIDE. [Suspect]
     Active Substance: CYCLOPHOSPHAMIDE
     Dosage: MINIR?CHOP
     Route: 065
     Dates: start: 20200501

REACTIONS (2)
  - Myelosuppression [Recovering/Resolving]
  - Pigmentation disorder [Recovering/Resolving]

NARRATIVE: CASE EVENT DATE: 20210815
